FAERS Safety Report 13781711 (Version 1)
Quarter: 2017Q3

REPORT INFORMATION
  Report Type: Spontaneous
  Country: US (occurrence: US)
  Receive Date: 20170724
  Receipt Date: 20170724
  Transmission Date: 20171127
  Serious: Yes (Other)
  Sender: FDA-Public Use
  Company Number: US-RECKITT BENCKISER HEALTHCARE INT LIMITED-RB-90702-2017

PATIENT
  Age: 13 Year
  Sex: Female

DRUGS (1)
  1. MUCINEX FAST-MAX NIGHT TIME COLD AND FLU (ACETAMINOPHEN\DIPHENHYDR\PHENYLEP) [Suspect]
     Active Substance: ACETAMINOPHEN\DIPHENHYDRAMINE HYDROCHLORIDE\PHENYLEPHRINE HYDROCHLORIDE
     Indication: COUGH
     Dosage: UNK, SINGLE
     Route: 065
     Dates: start: 20170626, end: 20170626

REACTIONS (2)
  - Dyspnoea [Unknown]
  - Drug ineffective [Not Recovered/Not Resolved]

NARRATIVE: CASE EVENT DATE: 20170626
